FAERS Safety Report 6027361-4 (Version None)
Quarter: 2009Q1

REPORT INFORMATION
  Report Type: 
  Country: None (occurrence: None)
  Receive Date: 20090105
  Receipt Date: 20081229
  Transmission Date: 20090719
  Serious: Yes (Other)
  Sender: FDA-Public Use
  Company Number: B0552120A

PATIENT

DRUGS (2)
  1. ZEFIX [Suspect]
     Route: 048
  2. HEPSERA [Suspect]
     Route: 048

REACTIONS (2)
  - ALTERED STATE OF CONSCIOUSNESS [None]
  - DYSPHAGIA [None]
